FAERS Safety Report 5519743-1 (Version None)
Quarter: 2007Q4

REPORT INFORMATION
  Report Type: 
  Country: None (occurrence: None)
  Receive Date: 20071116
  Receipt Date: 20070801
  Transmission Date: 20080405
  Serious: No
  Sender: FDA-Public Use
  Company Number: A0667661A

PATIENT
  Age: 45 Year
  Sex: Male

DRUGS (10)
  1. COREG CR [Suspect]
     Dosage: 80MG PER DAY
     Route: 048
     Dates: start: 20070501
  2. LISINOPRIL [Concomitant]
  3. SPIRONOLACTONE [Concomitant]
  4. LIPITOR [Concomitant]
  5. ASPIRIN [Concomitant]
  6. VITAMIN [Concomitant]
  7. FUROSEMIDE [Concomitant]
  8. POTASSIUM CHLORIDE [Concomitant]
  9. STOOL SOFTENER [Concomitant]
  10. VIAGRA [Concomitant]

REACTIONS (4)
  - BLOOD PRESSURE DECREASED [None]
  - DIZZINESS [None]
  - MUSCLE FATIGUE [None]
  - WEIGHT INCREASED [None]
